FAERS Safety Report 7932377-4 (Version None)
Quarter: 2011Q4

REPORT INFORMATION
  Report Type: 
  Country: None (occurrence: None)
  Receive Date: 20111121
  Receipt Date: 20111108
  Transmission Date: 20120403
  Serious: Yes (Other)
  Sender: FDA-Public Use
  Company Number: CA-MYLANLABS-2011S1023283

PATIENT
  Age: 26 Year
  Sex: Female

DRUGS (3)
  1. QUETIAPINE [Interacting]
     Indication: INSOMNIA
     Dosage: 25MG EVERY NIGHT
     Route: 065
  2. RISPERIDONE [Suspect]
     Indication: BIPOLAR DISORDER
     Dates: start: 20091201
  3. LITHIUM CARBONATE [Interacting]
     Indication: BIPOLAR DISORDER
     Dosage: 1050 MG/DAY (SERUM LEVELS 0.45-0.90 MEQ/L)
     Route: 065
     Dates: start: 20091201

REACTIONS (2)
  - DIABETES INSIPIDUS [None]
  - DRUG INTERACTION [None]
